FAERS Safety Report 6397418-7 (Version None)
Quarter: 2009Q4

REPORT INFORMATION
  Report Type: 
  Country: None (occurrence: None)
  Receive Date: 20091012
  Receipt Date: 20091007
  Transmission Date: 20100525
  Serious: Yes (Life-Threatening)
  Sender: FDA-Public Use
  Company Number: NZ-ASTRAZENECA-2009SE18752

PATIENT
  Age: 21684 Day
  Sex: Female

DRUGS (5)
  1. OMEPRAZOLE [Suspect]
     Indication: DYSPEPSIA
     Route: 048
     Dates: end: 20031123
  2. BENDROFLUAZIDE [Interacting]
     Indication: ESSENTIAL HYPERTENSION
     Route: 048
     Dates: end: 20031122
  3. VALPROATE SODIUM [Interacting]
     Indication: NEURALGIA
     Route: 048
     Dates: start: 20031118, end: 20031124
  4. DEXAMETHASONE 0.5MG TAB [Concomitant]
     Indication: NEURALGIA
     Route: 048
     Dates: start: 20031118, end: 20031123
  5. METOPROLOL [Concomitant]
     Route: 048

REACTIONS (2)
  - DRUG INTERACTION [None]
  - HYPONATRAEMIA [None]
